FAERS Safety Report 11564814 (Version 1)
Quarter: 2015Q3

REPORT INFORMATION
  Report Type: Spontaneous
  Country: US (occurrence: US)
  Receive Date: 20150916
  Receipt Date: 20150916
  Transmission Date: 20151125
  Serious: No
  Sender: FDA-Public Use
  Company Number: US-ELI_LILLY_AND_COMPANY-US200904000690

PATIENT
  Age: 79 Year
  Sex: Female

DRUGS (3)
  1. FORTEO [Suspect]
     Active Substance: TERIPARATIDE
     Indication: OSTEOPOROSIS
     Dates: start: 20060820, end: 20061115
  2. FORTEO [Suspect]
     Active Substance: TERIPARATIDE
     Dates: start: 20081002
  3. FORTEO [Suspect]
     Active Substance: TERIPARATIDE
     Dates: start: 20070530, end: 20080423

REACTIONS (7)
  - Fatigue [Unknown]
  - Limb injury [Not Recovered/Not Resolved]
  - Pain in extremity [Unknown]
  - Pain [Not Recovered/Not Resolved]
  - Injury [Unknown]
  - Blood calcium increased [Recovered/Resolved]
  - Blood alkaline phosphatase increased [Recovered/Resolved]

NARRATIVE: CASE EVENT DATE: 20080423
